FAERS Safety Report 20938942 (Version 1)
Quarter: 2022Q2

REPORT INFORMATION
  Report Type: Spontaneous
  Country: US (occurrence: None)
  Receive Date: 20220609
  Receipt Date: 20220609
  Transmission Date: 20220721
  Serious: Yes (Disabling)
  Sender: FDA-Public Use
  Company Number: None

PATIENT
  Age: 69 Year
  Sex: Female
  Weight: 56.25 kg

DRUGS (11)
  1. EVUSHELD [Suspect]
     Active Substance: CILGAVIMAB\TIXAGEVIMAB
     Indication: Primary immunodeficiency syndrome
     Route: 030
     Dates: start: 20220530, end: 20220530
  2. CORTISONE [Concomitant]
     Active Substance: CORTISONE
  3. LEVOTHYROXINE [Concomitant]
     Active Substance: LEVOTHYROXINE
  4. ACYCLOVIR [Concomitant]
     Active Substance: ACYCLOVIR
  5. IMMUNE GLOBULIN [Concomitant]
  6. ACETAMINOPHEN [Concomitant]
     Active Substance: ACETAMINOPHEN
  7. MILK OF MAGNESIA [Concomitant]
  8. STOOL SOFTENER (DOCUSATE) [Concomitant]
     Active Substance: DOCUSATE
  9. BENADRYL [Concomitant]
     Active Substance: DIPHENHYDRAMINE HYDROCHLORIDE
  10. ALLEGRA [Concomitant]
     Active Substance: FEXOFENADINE HYDROCHLORIDE
  11. PEPCID [Concomitant]
     Active Substance: FAMOTIDINE

REACTIONS (15)
  - Chills [None]
  - Hyperhidrosis [None]
  - Nausea [None]
  - Dizziness [None]
  - Fluid retention [None]
  - Angioedema [None]
  - Chest pain [None]
  - Dyspnoea [None]
  - Vision blurred [None]
  - Headache [None]
  - Neck pain [None]
  - Myalgia [None]
  - Asthenia [None]
  - Fatigue [None]
  - Hypertension [None]

NARRATIVE: CASE EVENT DATE: 20220530
